FAERS Safety Report 17601281 (Version 1)
Quarter: 2020Q1

REPORT INFORMATION
  Report Type: Spontaneous
  Country: GB (occurrence: GB)
  Receive Date: 20200331
  Receipt Date: 20200331
  Transmission Date: 20200409
  Serious: Yes (Other)
  Sender: FDA-Public Use
  Company Number: GB-ALK-ABELLO A/S-2020AA001027

PATIENT

DRUGS (2)
  1. CALPOL [Concomitant]
     Active Substance: ACETAMINOPHEN
  2. GRAZAX [Suspect]
     Active Substance: PHLEUM PRATENSE POLLEN
     Indication: IMMUNE ENHANCEMENT THERAPY
     Dosage: 75000 IU
     Route: 060
     Dates: start: 20200207

REACTIONS (4)
  - Salivary hypersecretion [Recovered/Resolved]
  - Ear pruritus [Recovered/Resolved]
  - Pharyngeal swelling [Recovering/Resolving]
  - Swollen tongue [Recovered/Resolved]

NARRATIVE: CASE EVENT DATE: 20200210
